FAERS Safety Report 5689680-0 (Version None)
Quarter: 2008Q1

REPORT INFORMATION
  Report Type: 
  Country: None (occurrence: None)
  Receive Date: 20080328
  Receipt Date: 20080320
  Transmission Date: 20080703
  Serious: Yes (Hospitalization)
  Sender: FDA-Public Use
  Company Number: 008-C5013-07110927

PATIENT
  Age: 65 Year
  Sex: Male
  Weight: 98 kg

DRUGS (4)
  1. CC-5013 (LENALIDOMIDE) (CAPSULES) [Suspect]
     Indication: MULTIPLE MYELOMA
     Dosage: 25 MG DAILY ORAL; 15 MG DAILY ORAL
     Route: 048
     Dates: start: 20071018, end: 20071128
  2. CC-5013 (LENALIDOMIDE) (CAPSULES) [Suspect]
     Indication: MULTIPLE MYELOMA
     Dosage: 25 MG DAILY ORAL; 15 MG DAILY ORAL
     Route: 048
     Dates: start: 20071129
  3. DEXAMETHASONE TAB [Suspect]
     Indication: MULTIPLE MYELOMA
     Dosage: DAYS 1-4, 9-12, 17-20, ORAL
     Route: 048
     Dates: start: 20071018, end: 20071106
  4. PACKED CELLS (BLOOD TRANSFUSION, AUXILIARY PRODUCTS) [Concomitant]

REACTIONS (13)
  - ANAEMIA [None]
  - CHILLS [None]
  - COLLAPSE OF LUNG [None]
  - DYSPNOEA [None]
  - HYPERTENSION [None]
  - LETHARGY [None]
  - LISTLESS [None]
  - MALAISE [None]
  - PLEURAL EFFUSION [None]
  - PNEUMONIA PRIMARY ATYPICAL [None]
  - PNEUMONITIS [None]
  - PULMONARY OEDEMA [None]
  - TRANSFUSION REACTION [None]
